FAERS Safety Report 5132567-2 (Version None)
Quarter: 2006Q4

REPORT INFORMATION
  Report Type: 
  Country: None (occurrence: None)
  Receive Date: 20061017
  Receipt Date: 20061004
  Transmission Date: 20070319
  Serious: Yes (Hospitalization)
  Sender: FDA-Public Use
  Company Number: RENA-11949

PATIENT
  Age: 67 Year
  Sex: Male

DRUGS (1)
  1. PHOSBLOCK 250 MG TABLETS [Suspect]
     Indication: HYPERPHOSPHATAEMIA
     Dates: start: 20060907, end: 20061003

REACTIONS (1)
  - MELAENA [None]
